FAERS Safety Report 9713563 (Version 1)
Quarter: 2013Q4

REPORT INFORMATION
  Report Type: Spontaneous
  Country: US (occurrence: US)
  Receive Date: 20131126
  Receipt Date: 20131126
  Transmission Date: 20140711
  Serious: No
  Sender: FDA-Public Use
  Company Number: US-PFIZER INC-2013334191

PATIENT
  Age: 65 Year
  Sex: Female
  Weight: 52.15 kg

DRUGS (3)
  1. XELJANZ [Suspect]
     Indication: RHEUMATOID ARTHRITIS
     Dosage: 5 MG, 2X/DAY
     Route: 048
     Dates: start: 201310
  2. LEVOTHYROXINE [Concomitant]
     Dosage: UNK
  3. PRAVASTATIN [Concomitant]
     Dosage: UNK

REACTIONS (2)
  - Fluid intake reduced [Unknown]
  - Muscle spasms [Unknown]
